FAERS Safety Report 10358095 (Version 7)
Quarter: 2016Q1

REPORT INFORMATION
  Report Type: Spontaneous
  Country: US (occurrence: US)
  Receive Date: 20140801
  Receipt Date: 20160330
  Transmission Date: 20160525
  Serious: No
  Sender: FDA-Public Use
  Company Number: US-PFIZER INC-2014215299

PATIENT
  Age: 55 Year
  Sex: Female

DRUGS (2)
  1. XELJANZ [Suspect]
     Active Substance: TOFACITINIB CITRATE
     Dosage: 5 MG, 2X/DAY
     Dates: start: 201405
  2. XELJANZ [Suspect]
     Active Substance: TOFACITINIB CITRATE
     Indication: RHEUMATOID ARTHRITIS
     Dosage: 5 MG, 2X/DAY
     Route: 048
     Dates: start: 201406

REACTIONS (9)
  - Arthralgia [Recovered/Resolved]
  - Neck pain [Recovered/Resolved]
  - Paraesthesia [Not Recovered/Not Resolved]
  - Carpal tunnel syndrome [Unknown]
  - Back pain [Recovered/Resolved]
  - Nasal congestion [Recovered/Resolved]
  - Productive cough [Recovered/Resolved]
  - Secretion discharge [Recovered/Resolved]
  - Gout [Not Recovered/Not Resolved]

NARRATIVE: CASE EVENT DATE: 20140729
